FAERS Safety Report 4981418-5 (Version None)
Quarter: 2006Q2

REPORT INFORMATION
  Report Type: 
  Country: None (occurrence: None)
  Receive Date: 20060424
  Receipt Date: 20060414
  Transmission Date: 20061013
  Serious: Yes (Other)
  Sender: FDA-Public Use
  Company Number: FR-MERCK-0604FRA00047

PATIENT
  Age: 59 Year
  Sex: Female

DRUGS (8)
  1. ZETIA [Suspect]
     Indication: HYPERCHOLESTEROLAEMIA
     Route: 048
     Dates: start: 20060110, end: 20060101
  2. ZOCOR [Concomitant]
     Indication: HYPERCHOLESTEROLAEMIA
     Route: 048
     Dates: start: 20050101, end: 20060101
  3. ZOCOR [Concomitant]
     Route: 048
     Dates: start: 20060201
  4. CARBAMAZEPINE [Interacting]
     Indication: EPILEPSY
     Route: 048
  5. RISPERIDONE [Concomitant]
     Indication: PSYCHOTIC DISORDER
     Route: 048
  6. PIPAMPERONE HYDROCHLORIDE [Concomitant]
     Indication: PSYCHOTIC DISORDER
     Route: 048
  7. PERICIAZINE [Concomitant]
     Indication: PSYCHOTIC DISORDER
     Route: 048
  8. PHENOBARBITAL [Interacting]
     Indication: EPILEPSY
     Route: 048

REACTIONS (2)
  - DRUG INTERACTION [None]
  - EPILEPSY [None]
